FAERS Safety Report 9022075 (Version 1)
Quarter: 2013Q1

REPORT INFORMATION
  Report Type: Spontaneous
  Country: CA (occurrence: CA)
  Receive Date: 20130118
  Receipt Date: 20130118
  Transmission Date: 20140127
  Serious: Yes (Death)
  Sender: FDA-Public Use
  Company Number: CA-GLAXOSMITHKLINE-A1008730A

PATIENT
  Sex: Female

DRUGS (4)
  1. VOTRIENT [Suspect]
     Indication: SARCOMA
     Dosage: 800MG PER DAY
     Route: 048
     Dates: start: 20121102
  2. EMPRACET [Concomitant]
  3. ATIVAN [Concomitant]
  4. PANTOLOC [Concomitant]

REACTIONS (1)
  - Death [Fatal]
